FAERS Safety Report 13941198 (Version 3)
Quarter: 2017Q3

REPORT INFORMATION
  Report Type: Spontaneous
  Country: RU (occurrence: RU)
  Receive Date: 20170906
  Receipt Date: 20170919
  Transmission Date: 20171127
  Serious: Yes (Hospitalization, Other)
  Sender: FDA-Public Use
  Company Number: RU-ASTRAZENECA-2017SE89418

PATIENT
  Age: 82 Year
  Sex: Male
  Weight: 60 kg

DRUGS (5)
  1. ALLAPININ [Concomitant]
  2. CAPECITABINE. [Concomitant]
     Active Substance: CAPECITABINE
  3. CAPECITABINE. [Concomitant]
     Active Substance: CAPECITABINE
     Dosage: SOTAHEXAL
  4. BRILINTA [Suspect]
     Active Substance: TICAGRELOR
     Indication: MYOCARDIAL INFARCTION
     Route: 048
     Dates: start: 201508
  5. GALANTAMINE. [Concomitant]
     Active Substance: GALANTAMINE

REACTIONS (3)
  - Product use issue [Unknown]
  - Rectal cancer [Not Recovered/Not Resolved]
  - Off label use [Unknown]
